FAERS Safety Report 19180822 (Version 1)
Quarter: 2021Q2

REPORT INFORMATION
  Report Type: Spontaneous
  Country: US (occurrence: US)
  Receive Date: 20210426
  Receipt Date: 20210426
  Transmission Date: 20210717
  Serious: Yes (Other)
  Sender: FDA-Public Use
  Company Number: US-PFIZER INC-2021406873

PATIENT
  Age: 63 Year
  Sex: Male

DRUGS (4)
  1. FLAGYL [Suspect]
     Active Substance: METRONIDAZOLE\METRONIDAZOLE HYDROCHLORIDE
     Indication: COLITIS
     Dosage: UNK
     Dates: start: 202103
  2. ASPIRIN [ACETYLSALICYLIC ACID] [Concomitant]
     Active Substance: ASPIRIN
     Indication: EMBOLISM
     Dosage: 5 MILLIGRAM
     Route: 065
     Dates: start: 20171108
  3. APIXABAN [Concomitant]
     Active Substance: APIXABAN
     Indication: EMBOLISM
     Dosage: 5 MILLIGRAM
     Route: 065
     Dates: start: 20171108
  4. ZOSYN [Suspect]
     Active Substance: PIPERACILLIN SODIUM\TAZOBACTAM SODIUM
     Indication: COLITIS
     Dosage: UNK
     Route: 042
     Dates: start: 202103

REACTIONS (1)
  - Acute kidney injury [Unknown]
